FAERS Safety Report 17242251 (Version 8)
Quarter: 2022Q2

REPORT INFORMATION
  Report Type: Report from Study
  Country: CN (occurrence: CN)
  Receive Date: 20200107
  Receipt Date: 20220524
  Transmission Date: 20220720
  Serious: Yes (Hospitalization)
  Sender: FDA-Public Use
  Company Number: NVSC2019CN079518

PATIENT
  Age: 47 Year
  Sex: Female
  Weight: 65 kg

DRUGS (9)
  1. RIBOCICLIB [Suspect]
     Active Substance: RIBOCICLIB
     Indication: HER2 negative breast cancer
     Dosage: UNK
     Route: 048
     Dates: start: 20190703
  2. LETROZOLE [Suspect]
     Active Substance: LETROZOLE
     Indication: HER2 negative breast cancer
     Dosage: 2.5 MG, QD (DAILY)
     Route: 048
     Dates: start: 20190703
  3. GOSERELIN [Suspect]
     Active Substance: GOSERELIN
     Indication: HER2 negative breast cancer
     Dosage: 3.6 MG, QMO (EVERY MONTH)
     Route: 058
     Dates: start: 20190703
  4. INCADRONATE DISODIUM [Concomitant]
     Active Substance: INCADRONATE DISODIUM
     Indication: Resorption bone increased
     Dosage: UNK
     Route: 065
     Dates: start: 20191218, end: 20191218
  5. VIDARABINE [Concomitant]
     Active Substance: VIDARABINE
     Indication: Cough
     Dosage: UNK
     Route: 065
     Dates: start: 20191209, end: 20191214
  6. LYSINE ACETYLSALICYLATE [Concomitant]
     Active Substance: ASPIRIN DL-LYSINE
     Indication: Cough
     Dosage: UNK
     Route: 065
     Dates: start: 20191209, end: 20191214
  7. FOSFOMYCIN SODIUM [Concomitant]
     Active Substance: FOSFOMYCIN SODIUM
     Indication: Cough
     Dosage: UNK
     Route: 065
     Dates: start: 20191209, end: 20191214
  8. GLUTATHIONE [Concomitant]
     Active Substance: GLUTATHIONE
     Indication: Gamma-glutamyltransferase increased
     Dosage: UNK
     Route: 065
     Dates: start: 20191220, end: 20191224
  9. BICYCLOL [Concomitant]
     Active Substance: BICYCLOL
     Indication: Alanine aminotransferase increased
     Dosage: UNK
     Route: 065
     Dates: start: 20191220, end: 20191224

REACTIONS (1)
  - Pneumonia [Not Recovered/Not Resolved]

NARRATIVE: CASE EVENT DATE: 20191224
